FAERS Safety Report 6631564-5 (Version None)
Quarter: 2010Q1

REPORT INFORMATION
  Report Type: 
  Country: None (occurrence: None)
  Receive Date: 20100312
  Receipt Date: 20100305
  Transmission Date: 20100710
  Serious: Yes (Hospitalization)
  Sender: FDA-Public Use
  Company Number: PHEH2010US02750

PATIENT
  Sex: Female

DRUGS (3)
  1. FEMARA [Suspect]
     Dosage: 2.5 MG, QD
     Route: 048
     Dates: start: 20060801
  2. ASMANEX TWISTHALER [Concomitant]
     Indication: ASTHMA
     Dosage: UNK
     Dates: start: 20060801
  3. ALBUTEROL [Concomitant]
     Indication: ASTHMA
     Dosage: 2 PUFFS Q4-6H
     Dates: start: 20060801

REACTIONS (6)
  - FALL [None]
  - HIP FRACTURE [None]
  - HIP SURGERY [None]
  - MUSCLE TIGHTNESS [None]
  - OSTEOPOROSIS [None]
  - TOOTH DISORDER [None]
